FAERS Safety Report 24623142 (Version 3)
Quarter: 2025Q4

REPORT INFORMATION
  Report Type: Report from Study
  Country: EU (occurrence: EU)
  Receive Date: 20241115
  Receipt Date: 20251120
  Transmission Date: 20260117
  Serious: Yes (Hospitalization)
  Sender: ABBVIE
  Company Number: EU-ABBVIE-6003198

PATIENT
  Age: 20 Year
  Sex: Male
  Weight: 67 kg

DRUGS (4)
  1. UPADACITINIB [Suspect]
     Active Substance: UPADACITINIB
     Indication: Colitis ulcerative
     Route: 048
     Dates: start: 20240910, end: 20240924
  2. UPADACITINIB [Suspect]
     Active Substance: UPADACITINIB
     Indication: Colitis ulcerative
     Route: 048
     Dates: start: 20241005
  3. MESALAMINE [Concomitant]
     Active Substance: MESALAMINE
     Indication: Colitis ulcerative
     Dosage: TIME INTERVAL: 0.33333333 DAYS
     Route: 048
     Dates: start: 202310, end: 20241009
  4. IRON [Concomitant]
     Active Substance: IRON
     Indication: Anaemia
     Dosage: SUPPLEMENTATION?DOSE UNIT: 1 TABLET
     Route: 048
     Dates: start: 20240818, end: 20240918

REACTIONS (1)
  - Hyperpyrexia [Recovered/Resolved]

NARRATIVE: CASE EVENT DATE: 20240928
